FAERS Safety Report 9329554 (Version 1)
Quarter: 2013Q2

REPORT INFORMATION
  Report Type: Spontaneous
  Country: US (occurrence: US)
  Receive Date: 20130604
  Receipt Date: 20130604
  Transmission Date: 20140414
  Serious: No
  Sender: FDA-Public Use
  Company Number: US-SANOFI-AVENTIS-2013SA029832

PATIENT
  Sex: Female

DRUGS (3)
  1. LANTUS [Suspect]
  2. HUMALOG [Suspect]
  3. METFORMIN [Suspect]

REACTIONS (3)
  - Fatigue [Unknown]
  - Abdominal discomfort [Unknown]
  - Decreased appetite [Unknown]
